FAERS Safety Report 6555676-X (Version None)
Quarter: 2010Q1

REPORT INFORMATION
  Report Type: 
  Country: None (occurrence: None)
  Receive Date: 20100128
  Receipt Date: 20100118
  Transmission Date: 20100710
  Serious: Yes (Hospitalization, Other)
  Sender: FDA-Public Use
  Company Number: PHHY2009FR41737

PATIENT
  Sex: Female
  Weight: 91 kg

DRUGS (17)
  1. ACLASTA [Suspect]
     Indication: OSTEOPOROSIS POSTMENOPAUSAL
     Dosage: 5 MG, UNK
     Route: 042
  2. ACLASTA [Suspect]
     Dosage: 5 MG, UNK
     Dates: start: 20090915
  3. APROVEL [Concomitant]
     Indication: HYPERTENSION
     Dosage: 1 DF/DAY
  4. AMLOR [Concomitant]
     Indication: HYPERTENSION
     Dosage: 1 DF/DAY
  5. TARDYFERON B(9) [Concomitant]
     Indication: ANAEMIA
     Dosage: 2 DF/DAY
  6. CRESTOR [Concomitant]
     Indication: HYPERCHOLESTEROLAEMIA
     Dosage: 1 DF/DAY
  7. ASPEGIC 1000 [Concomitant]
     Indication: ISCHAEMIC CARDIOMYOPATHY
     Dosage: 1 DF/DAY
  8. SECTRAL [Concomitant]
     Indication: HYPERTENSION
     Dosage: 1 DF/DAY
  9. LYRICA [Concomitant]
     Dosage: 2 DF/DAY
  10. GLUCOR [Concomitant]
     Indication: TYPE 2 DIABETES MELLITUS
     Dosage: 3 DF/DAY
  11. SERESTA [Concomitant]
     Indication: ANXIETY
     Dosage: 1 DF/DAY
  12. DITROPAN [Concomitant]
     Indication: BLISTER
     Dosage: 2 DF/DAY
  13. EFFEXOR [Concomitant]
     Indication: DEPRESSION
     Dosage: 1 DF/DAY
  14. OROCAL D3 [Concomitant]
     Indication: OSTEOPOROSIS
     Dosage: 1 DF/DAY
  15. UVEDOSE [Concomitant]
     Indication: VITAMIN D DEFICIENCY
     Dosage: 1 DF/MONTH
  16. AMAREL [Concomitant]
     Indication: TYPE 2 DIABETES MELLITUS
     Dosage: 2 DF/DAY
  17. CLARADOL CAFFEINE [Concomitant]
     Indication: PAIN

REACTIONS (10)
  - BLADDER CATHETERISATION [None]
  - DIABETIC NEPHROPATHY [None]
  - HAEMOGLOBIN DECREASED [None]
  - HYPERTENSIVE NEPHROPATHY [None]
  - INFLUENZA LIKE ILLNESS [None]
  - LUNG DISORDER [None]
  - MYALGIA [None]
  - PYREXIA [None]
  - RENAL FAILURE ACUTE [None]
  - URINARY RETENTION [None]
